FAERS Safety Report 6983267-5 (Version None)
Quarter: 2010Q3

REPORT INFORMATION
  Report Type: 
  Country: None (occurrence: None)
  Receive Date: 20100914
  Receipt Date: 20100721
  Transmission Date: 20110219
  Serious: No
  Sender: FDA-Public Use
  Company Number: US-PFIZER INC-2010092204

PATIENT
  Age: 32 Year
  Sex: Female
  Weight: 50.794 kg

DRUGS (3)
  1. LYRICA [Suspect]
     Indication: PAIN
     Dosage: 25 MG, DAILY
     Route: 048
  2. LYRICA [Suspect]
     Dosage: 50 MG, 2X/DAY
     Route: 048
     Dates: start: 20100303
  3. ANTABUSE [Suspect]
     Dosage: UNK, ALTERNATE DAY
     Route: 048

REACTIONS (2)
  - NAUSEA [None]
  - URINE BARBITURATES [None]
